FAERS Safety Report 25078832 (Version 3)
Quarter: 2025Q3

REPORT INFORMATION
  Report Type: Spontaneous
  Country: US (occurrence: US)
  Receive Date: 20250314
  Receipt Date: 20250909
  Transmission Date: 20251020
  Serious: Yes (Hospitalization)
  Sender: SANOFI AVENTIS
  Company Number: US-SA-2025SA075495

PATIENT
  Age: 60 Year
  Sex: Female

DRUGS (4)
  1. DUPIXENT [Suspect]
     Active Substance: DUPILUMAB
     Indication: Chronic obstructive pulmonary disease
     Route: 058
     Dates: start: 20241028, end: 20241028
  2. DUPIXENT [Suspect]
     Active Substance: DUPILUMAB
     Dosage: 300 MG, QOW
     Route: 058
     Dates: start: 20241111
  3. OXYGEN [Concomitant]
     Active Substance: OXYGEN
  4. OXYGEN [Concomitant]
     Active Substance: OXYGEN

REACTIONS (6)
  - Chronic obstructive pulmonary disease [Unknown]
  - Sinus disorder [Unknown]
  - Wheezing [Unknown]
  - COVID-19 [Unknown]
  - Productive cough [Not Recovered/Not Resolved]
  - Incorrect dose administered by product [Unknown]

NARRATIVE: CASE EVENT DATE: 20241028
